FAERS Safety Report 24232587 (Version 1)
Quarter: 2024Q3

REPORT INFORMATION
  Report Type: Report from Study
  Country: ES (occurrence: ES)
  Receive Date: 20240821
  Receipt Date: 20240821
  Transmission Date: 20241016
  Serious: Yes (Death, Hospitalization)
  Sender: ACCORD
  Company Number: ES-EMA-DD-20240730-7482709-063248

PATIENT
  Age: 50 Year
  Sex: Male

DRUGS (6)
  1. CARBOPLATIN [Suspect]
     Active Substance: CARBOPLATIN
     Indication: Immunosuppressant drug therapy
  2. PEMETREXED [Suspect]
     Active Substance: PEMETREXED
     Indication: Immunosuppressant drug therapy
  3. PEMBROLIZUMAB [Suspect]
     Active Substance: PEMBROLIZUMAB
     Indication: Immunosuppressant drug therapy
  4. HYDROCORTISONE [Suspect]
     Active Substance: HYDROCORTISONE\HYDROCORTISONE ACETATE
     Indication: Immunosuppressant drug therapy
     Dosage: 100MG/8 HOURS
  5. VORICONAZOLE [Concomitant]
     Active Substance: VORICONAZOLE
     Indication: Fungal skin infection
  6. ANIDULAFUNGIN [Concomitant]
     Active Substance: ANIDULAFUNGIN
     Indication: Fungal skin infection

REACTIONS (1)
  - Fungal infection [Fatal]
